FAERS Safety Report 4636740-9 (Version None)
Quarter: 2005Q2

REPORT INFORMATION
  Report Type: 
  Country: None (occurrence: None)
  Receive Date: 20050414
  Receipt Date: 20050401
  Transmission Date: 20051028
  Serious: Yes (Hospitalization, Other)
  Sender: FDA-Public Use
  Company Number: 2005054325

PATIENT
  Age: 85 Year
  Sex: Female

DRUGS (7)
  1. CELEBRA (CELECOXIB) [Suspect]
     Indication: PAIN
     Dosage: 200 MG (200 MG, 1 IN 1 D), ORAL
     Route: 048
     Dates: end: 20050301
  2. TRAMADOL HCL [Suspect]
     Indication: PAIN
     Dosage: 300 MG (300 MG, 1 IN 1 D), ORAL
     Route: 048
     Dates: end: 20050301
  3. POLYSACCCHARIDE-IRON COMPLEX (POLYSACCCHARIDE-IRON COMPLEX) [Concomitant]
  4. TRIOBE (CYANOCOBALAMIN, FOLIC ACID, PYRIDOXINE) [Concomitant]
  5. ACETAMINOPHEN [Concomitant]
  6. FUROSEMIDE [Concomitant]
  7. ALNDRONATE SODIUM (ALENDRONATE SODIUM) [Concomitant]

REACTIONS (8)
  - ANAEMIA [None]
  - AORTIC STENOSIS [None]
  - BONE MARROW DEPRESSION [None]
  - CARDIAC FAILURE [None]
  - GASTROINTESTINAL HAEMORRHAGE [None]
  - OEDEMA PERIPHERAL [None]
  - RENAL FAILURE [None]
  - SYNCOPE [None]
